FAERS Safety Report 7435983-9 (Version None)
Quarter: 2011Q2

REPORT INFORMATION
  Report Type: 
  Country: None (occurrence: None)
  Receive Date: 20110425
  Receipt Date: 20110422
  Transmission Date: 20111010
  Serious: Yes (Hospitalization)
  Sender: FDA-Public Use
  Company Number: JP-ABBOTT-11P-087-0721046-00

PATIENT
  Sex: Male

DRUGS (4)
  1. MIXED AMINO ACID_CARBOHYDRATE_ELECTROLYTE COMBINED DRUG [Concomitant]
     Indication: PRODUCT USED FOR UNKNOWN INDICATION
     Route: 042
     Dates: start: 20110401, end: 20110408
  2. HUMIRA [Suspect]
     Indication: CROHN'S DISEASE
     Route: 058
     Dates: start: 20110401, end: 20110401
  3. HUMIRA [Suspect]
  4. MESALAZINE [Concomitant]
     Indication: CROHN'S DISEASE
     Route: 048
     Dates: start: 20110323, end: 20110419

REACTIONS (1)
  - PYREXIA [None]
